FAERS Safety Report 7166798-7 (Version None)
Quarter: 2010Q4

REPORT INFORMATION
  Report Type: 
  Country: None (occurrence: None)
  Receive Date: 20101203
  Receipt Date: 20101123
  Transmission Date: 20110411
  Serious: No
  Sender: FDA-Public Use
  Company Number: US024199

PATIENT
  Sex: Female

DRUGS (4)
  1. FENTORA [Suspect]
     Indication: ARTHRALGIA
     Dosage: 4800 MCG (800 MCG, 6 IN 1 D),  BU
     Route: 002
  2. FENTORA [Suspect]
     Indication: CROHN'S DISEASE
     Dosage: 4800 MCG (800 MCG, 6 IN 1 D),  BU
     Route: 002
  3. ACTIQ (LORENGE) [Concomitant]
  4. FENTANYL (OULTICE OR PATCH) [Concomitant]

REACTIONS (2)
  - CIRCUMSTANCE OR INFORMATION CAPABLE OF LEADING TO MEDICATION ERROR [None]
  - DRUG PRESCRIBING ERROR [None]
